FAERS Safety Report 9075850 (Version 3)
Quarter: 2013Q2

REPORT INFORMATION
  Report Type: Report from Study
  Country: IT (occurrence: IT)
  Receive Date: 20130201
  Receipt Date: 20130508
  Transmission Date: 20140414
  Serious: Yes (Hospitalization, Other)
  Sender: FDA-Public Use
  Company Number: IT-TEVA-383764USA

PATIENT
  Age: 74 Year
  Sex: Male

DRUGS (3)
  1. TREANDA [Suspect]
     Indication: MANTLE CELL LYMPHOMA
     Route: 042
     Dates: start: 20120713, end: 20120714
  2. TREANDA [Suspect]
     Route: 042
     Dates: start: 20120820, end: 20120821
  3. TREANDA [Suspect]
     Route: 042
     Dates: start: 20120919, end: 20120920

REACTIONS (3)
  - Pseudomonal sepsis [Recovering/Resolving]
  - Acute myocardial infarction [Recovering/Resolving]
  - Ischaemic stroke [Recovering/Resolving]
